FAERS Safety Report 4678266-2 (Version None)
Quarter: 2005Q2

REPORT INFORMATION
  Report Type: 
  Country: None (occurrence: None)
  Receive Date: 20050601
  Receipt Date: 20050315
  Transmission Date: 20051028
  Serious: Yes (Death)
  Sender: FDA-Public Use
  Company Number: GB-BRISTOL-MYERS SQUIBB COMPANY-12901054

PATIENT
  Age: 21 Year
  Sex: Male

DRUGS (5)
  1. ABILIFY [Suspect]
     Indication: SCHIZOPHRENIA
     Route: 048
     Dates: start: 20050128, end: 20050207
  2. HALOPERIDOL [Concomitant]
     Indication: SCHIZOPHRENIA
     Route: 048
     Dates: start: 20050128, end: 20050207
  3. PHENERGAN [Concomitant]
     Indication: INSOMNIA
     Route: 048
     Dates: start: 20050128, end: 20050207
  4. LORAZEPAM [Concomitant]
     Route: 048
  5. PROCYCLIDINE HYDROCHLORIDE 2MG TAB [Concomitant]
     Route: 048

REACTIONS (1)
  - ROAD TRAFFIC ACCIDENT [None]
